FAERS Safety Report 8623072-7 (Version None)
Quarter: 2012Q3

REPORT INFORMATION
  Report Type: 
  Country: None (occurrence: None)
  Receive Date: 20120827
  Receipt Date: 20120820
  Transmission Date: 20120928
  Serious: Yes (Hospitalization, Other)
  Sender: FDA-Public Use
  Company Number: US-JNJFOC-20120510498

PATIENT
  Sex: Female
  Weight: 87.09 kg

DRUGS (37)
  1. REMICADE [Suspect]
     Indication: ARTHRITIS
     Route: 042
     Dates: start: 20111116
  2. LORATADINE [Concomitant]
     Indication: MULTIPLE ALLERGIES
     Route: 048
  3. ALBUTEROL [Concomitant]
     Dosage: 2 TO 3 PUFFS EVERY 3 TO 4 HOURS AS NEEDED
     Route: 055
  4. FOLIC ACID [Concomitant]
     Indication: ARTHRITIS
     Dosage: 2 TABLETS EVERY DAY EXCEPT THURSDAY
     Route: 048
  5. SIMVASTATIN [Concomitant]
     Indication: BLOOD CHOLESTEROL
     Route: 048
  6. PROMETHAZINE [Concomitant]
     Route: 048
  7. BUTALBITAL [Concomitant]
     Indication: MIGRAINE
     Route: 048
  8. ATROPINE [Concomitant]
     Route: 048
  9. TUSSIONEX [Concomitant]
     Indication: PRODUCT USED FOR UNKNOWN INDICATION
     Route: 048
  10. TYLENOL 3 WITH CODEINE [Concomitant]
     Indication: MIGRAINE
     Route: 048
  11. DIAZEPAM [Concomitant]
     Route: 048
  12. SIMVASTATIN [Concomitant]
     Indication: BLOOD PRESSURE
     Route: 048
  13. PROMETHAZINE [Concomitant]
     Indication: NAUSEA
     Route: 048
  14. CALCIUM CARBONATE [Concomitant]
     Indication: GASTROOESOPHAGEAL REFLUX DISEASE
     Route: 048
  15. IPRATROPIUM BROMIDE [Concomitant]
     Indication: ASTHMA
     Dosage: 2 TO 3 PER DAY
     Route: 055
  16. DIPHENOXYLATE [Concomitant]
     Route: 048
  17. REMICADE [Suspect]
     Dosage: 3RD INFUSION
     Route: 042
     Dates: start: 20111228, end: 20111228
  18. DIAZEPAM [Concomitant]
     Indication: ANXIETY
     Route: 048
  19. ZOLPIDEM [Concomitant]
     Indication: SLEEP DISORDER
     Route: 048
  20. MIRALAX [Concomitant]
     Indication: ABNORMAL FAECES
     Dosage: 1 TSB/POWDER ONCE A DAY
     Route: 048
  21. CYMBALTA [Concomitant]
     Indication: ARTHRITIS
     Route: 048
     Dates: start: 20110901
  22. ALL OTHER THERAPEUTIC PRODUCTS [Concomitant]
     Indication: ABNORMAL FAECES
     Route: 048
  23. METHOTREXATE [Concomitant]
     Dosage: 6 ON THURS DAY ONLY
     Route: 048
  24. REMICADE [Suspect]
     Indication: CROHN'S DISEASE
     Dosage: 3RD INFUSION
     Route: 042
     Dates: start: 20111228, end: 20111228
  25. REMICADE [Suspect]
     Route: 042
     Dates: start: 20111116
  26. OMEPRAZOLE [Concomitant]
     Indication: GASTROOESOPHAGEAL REFLUX DISEASE
     Route: 048
  27. POTASSIUM GLUCONATE TAB [Concomitant]
     Route: 048
  28. DIAZEPAM [Concomitant]
     Route: 048
  29. FLUTICASONE PROPIONATE [Concomitant]
     Indication: ASTHMA
     Dosage: 500/50/SOLUTION/ONCE A DAY/INHALATION
     Route: 055
  30. NITROFURANTOIN [Concomitant]
     Indication: PRODUCT USED FOR UNKNOWN INDICATION
     Route: 048
  31. ALBUTEROL [Concomitant]
     Indication: ASTHMA
     Route: 055
  32. GUAIFENESIN [Concomitant]
     Indication: ASTHMA
     Dosage: 1 AT MORNING AND 1 AT NIGHT
     Route: 048
  33. ZOLOFT [Concomitant]
     Indication: HYPERSOMNIA
     Route: 048
  34. PREDNISONE TAB [Concomitant]
     Route: 048
  35. MIRALAX [Concomitant]
     Route: 048
  36. ZYFLAMEND [Concomitant]
     Route: 065
  37. OXYCONTIN [Concomitant]
     Indication: PAIN
     Dosage: 1 ^EA^ 4 TO 6 HOURS
     Route: 048

REACTIONS (24)
  - DYSARTHRIA [None]
  - ARTHRITIS [None]
  - DYSPNOEA [None]
  - PERIORBITAL HAEMATOMA [None]
  - HYPERHIDROSIS [None]
  - INFUSION RELATED REACTION [None]
  - GENERAL PHYSICAL HEALTH DETERIORATION [None]
  - OEDEMA PERIPHERAL [None]
  - FALL [None]
  - MOOD SWINGS [None]
  - AMNESIA [None]
  - BACK PAIN [None]
  - FEELING ABNORMAL [None]
  - PAIN [None]
  - DIZZINESS [None]
  - DRY MOUTH [None]
  - HYPOTHYROIDISM [None]
  - MOOD ALTERED [None]
  - GAIT DISTURBANCE [None]
  - ARTHRALGIA [None]
  - INCREASED TENDENCY TO BRUISE [None]
  - TUBERCULOSIS [None]
  - BODY HEIGHT DECREASED [None]
  - MIGRAINE [None]
